FAERS Safety Report 7902596-1 (Version None)
Quarter: 2011Q4

REPORT INFORMATION
  Report Type: 
  Country: None (occurrence: None)
  Receive Date: 20111108
  Receipt Date: 20111024
  Transmission Date: 20120403
  Serious: Yes (Death)
  Sender: FDA-Public Use
  Company Number: US-WATSON-2011-17408

PATIENT
  Sex: Male

DRUGS (1)
  1. FENTANYL-75 [Suspect]
     Indication: PAIN
     Dosage: UNK
     Route: 062
     Dates: end: 20091128

REACTIONS (3)
  - TOXICITY TO VARIOUS AGENTS [None]
  - DRUG LEVEL INCREASED [None]
  - OVERDOSE [None]
